FAERS Safety Report 7540858-0 (Version None)
Quarter: 2011Q2

REPORT INFORMATION
  Report Type: 
  Country: None (occurrence: None)
  Receive Date: 20110603
  Receipt Date: 20110520
  Transmission Date: 20111010
  Serious: No
  Sender: FDA-Public Use
  Company Number: DSJ-2011-00304

PATIENT
  Age: 70 Year
  Sex: Female
  Weight: 70 kg

DRUGS (7)
  1. OLMESARTAN MEDOXOMIL [Suspect]
     Indication: ESSENTIAL HYPERTENSION
     Dosage: 20 MG, PER ORAL
     Route: 048
     Dates: start: 20100609, end: 20100630
  2. PERDIPINE-LA (NICARDIPINE HYDROCHLORIDE) (NICARDIPINE HYDROCHLORIDE) [Concomitant]
  3. TENORMIN [Concomitant]
  4. DEPAS (ETIZOLAM) (ETIZOLAM) [Concomitant]
  5. INDAPAMIDE [Concomitant]
  6. CONIEL (BENIDIPINE HYDROCHLORIDE) (BENIDIPINE HYDROCHLORIDE) [Concomitant]
  7. CARVEDILOL [Concomitant]

REACTIONS (3)
  - BLOOD PRESSURE INCREASED [None]
  - ANXIETY [None]
  - HEADACHE [None]
